FAERS Safety Report 9473388 (Version 2)
Quarter: 2013Q3

REPORT INFORMATION
  Report Type: Spontaneous
  Country: US (occurrence: US)
  Receive Date: 20130823
  Receipt Date: 20130823
  Transmission Date: 20140515
  Serious: No
  Sender: FDA-Public Use
  Company Number: US-GALDERMA-US-GDP-12414055

PATIENT
  Age: 42 Year
  Sex: Female
  Weight: 61 kg

DRUGS (1)
  1. METROGEL [Suspect]
     Indication: ROSACEA
     Route: 061
     Dates: start: 20120323, end: 20120613

REACTIONS (2)
  - Dysgeusia [Recovered/Resolved]
  - Abdominal pain [Recovered/Resolved]
